FAERS Safety Report 5576893-1 (Version None)
Quarter: 2007Q4

REPORT INFORMATION
  Report Type: 
  Country: None (occurrence: None)
  Receive Date: 20071228
  Receipt Date: 20071220
  Transmission Date: 20080405
  Serious: Yes (Death, Hospitalization)
  Sender: FDA-Public Use
  Company Number: GB-RANBAXY-2007RR-12194

PATIENT

DRUGS (10)
  1. IBUPROFEN TABLETS BP 200MG [Suspect]
     Indication: PAIN IN EXTREMITY
  2. COTRIM [Suspect]
     Indication: PNEUMOCYSTIS JIROVECI PNEUMONIA
  3. CLARITHROMYCIN 250MG TABLETS [Suspect]
     Indication: CHEST DISCOMFORT
  4. CIPROFLOXACIN [Suspect]
     Indication: CHEST DISCOMFORT
  5. COMBIVIR [Suspect]
     Indication: HIV INFECTION
  6. EFAVIRENZ [Suspect]
     Indication: HIV INFECTION
  7. LAMIVUDINE [Suspect]
     Indication: HIV INFECTION
  8. TENOFOVIR DISOPROXIL FUMARATE [Suspect]
     Indication: HIV INFECTION
  9. NEVIRAPINE [Suspect]
     Indication: HIV INFECTION
  10. LOPERAMIDE HCL [Concomitant]
     Indication: DIARRHOEA

REACTIONS (1)
  - VANISHING BILE DUCT SYNDROME [None]
